FAERS Safety Report 5017786-8 (Version None)
Quarter: 2006Q2

REPORT INFORMATION
  Report Type: 
  Country: None (occurrence: None)
  Receive Date: 20060530
  Receipt Date: 20060517
  Transmission Date: 20061013
  Serious: Yes (Other)
  Sender: FDA-Public Use
  Company Number: 2005156897

PATIENT
  Age: 62 Year
  Sex: Female

DRUGS (6)
  1. DETROL LA [Suspect]
     Indication: URINARY INCONTINENCE
     Dosage: 4 MG (4 MG, 1 IN 1 D), ORAL
     Route: 048
     Dates: start: 20000101, end: 20051001
  2. VALSARTAN [Concomitant]
  3. SKELAXIN [Concomitant]
  4. POTASSIUM [Concomitant]
  5. RELAFEN [Concomitant]
  6. PREVACID [Concomitant]

REACTIONS (3)
  - DRY MOUTH [None]
  - DYSPHAGIA [None]
  - KNEE OPERATION [None]
